FAERS Safety Report 17356659 (Version 1)
Quarter: 2020Q1

REPORT INFORMATION
  Report Type: Spontaneous
  Country: US (occurrence: US)
  Receive Date: 20200131
  Receipt Date: 20200131
  Transmission Date: 20200409
  Serious: No
  Sender: FDA-Public Use
  Company Number: US-009507513-2001USA008318

PATIENT
  Age: 51 Year
  Sex: Male

DRUGS (1)
  1. BRIDION [Suspect]
     Active Substance: SUGAMMADEX
     Indication: PARALYSIS
     Dosage: 4 MILLIGRAM/KILOGRAM

REACTIONS (1)
  - Product use in unapproved indication [Unknown]
